FAERS Safety Report 13671494 (Version 1)
Quarter: 2017Q2

REPORT INFORMATION
  Report Type: Spontaneous
  Country: US (occurrence: US)
  Receive Date: 20170620
  Receipt Date: 20170620
  Transmission Date: 20170830
  Serious: Yes (Other)
  Sender: FDA-Public Use
  Company Number: US-ROCHE-694051

PATIENT
  Sex: Male

DRUGS (2)
  1. XELODA [Suspect]
     Active Substance: CAPECITABINE
     Indication: COLON CANCER
     Dosage: DOSE RECEIVED FOR 14 DAYS FOLLOWED BY ONE WEEK REST. DOSE WAS DECREASED.
     Route: 065
  2. XELODA [Suspect]
     Active Substance: CAPECITABINE
     Dosage: DOSE RECEIVED FOR 14 DAYS FOLLOWED BY ONE WEEK REST
     Route: 065

REACTIONS (1)
  - Neutropenia [Unknown]
